FAERS Safety Report 13577093 (Version 1)
Quarter: 2017Q2

REPORT INFORMATION
  Report Type: Spontaneous
  Country: IT (occurrence: IT)
  Receive Date: 20170524
  Receipt Date: 20170524
  Transmission Date: 20170830
  Serious: Yes (Other)
  Sender: FDA-Public Use
  Company Number: IT-ABBVIE-17P-083-1984477-00

PATIENT
  Age: 34 Year
  Sex: Male

DRUGS (2)
  1. CLARITHROMYCIN. [Suspect]
     Active Substance: CLARITHROMYCIN
     Indication: VIRAL UPPER RESPIRATORY TRACT INFECTION
     Route: 048
     Dates: start: 20170503, end: 20170503
  2. FLUIMUCIL (N-ACETYLCYSTEINE) [Concomitant]
     Indication: PRODUCT USED FOR UNKNOWN INDICATION
     Route: 065
     Dates: start: 20170426, end: 20170504

REACTIONS (1)
  - Palatal oedema [Recovering/Resolving]

NARRATIVE: CASE EVENT DATE: 20170504
